FAERS Safety Report 6267932-3 (Version None)
Quarter: 2009Q3

REPORT INFORMATION
  Report Type: 
  Country: None (occurrence: None)
  Receive Date: 20090714
  Receipt Date: 20090709
  Transmission Date: 20100115
  Serious: Yes (Hospitalization)
  Sender: FDA-Public Use
  Company Number: US-GENENTECH-286182

PATIENT
  Sex: Male
  Weight: 86.8 kg

DRUGS (5)
  1. BEVACIZUMAB [Suspect]
     Indication: LYMPHOMA
     Dosage: 1300 MG, UNK
     Dates: start: 20080109
  2. CYCLOPHOSPHAMIDE [Suspect]
     Indication: LYMPHOMA
     Dosage: 1520 MG, UNK
     Dates: start: 20080109
  3. DOXORUBICIN HCL [Suspect]
     Indication: LYMPHOMA
     Dosage: 50 MG/M2, UNK
     Dates: start: 20080109
  4. PREDNISONE TAB [Suspect]
     Indication: LYMPHOMA
     Dosage: 100 MG, QD
     Dates: start: 20080109
  5. VINCRISTINE [Suspect]
     Indication: LYMPHOMA
     Dosage: 1.4 MG/KG, UNK
     Dates: start: 20080109

REACTIONS (4)
  - CHEST PAIN [None]
  - FATIGUE [None]
  - THROMBOCYTOPENIA [None]
  - WHITE BLOOD CELL COUNT DECREASED [None]
